FAERS Safety Report 8953835 (Version 2)
Quarter: 2013Q1

REPORT INFORMATION
  Report Type: Spontaneous
  Country: US (occurrence: US)
  Receive Date: 20121206
  Receipt Date: 20130208
  Transmission Date: 20140127
  Serious: Yes (Hospitalization, Other)
  Sender: FDA-Public Use
  Company Number: US-US-EMD SERONO, INC.-7178421

PATIENT
  Age: 47 Year
  Sex: Male

DRUGS (7)
  1. REBIF [Suspect]
     Indication: MULTIPLE SCLEROSIS
     Dates: start: 20111124
  2. ASPIRIN [Concomitant]
     Indication: PRODUCT USED FOR UNKNOWN INDICATION
     Route: 048
     Dates: start: 20121017
  3. LIPITOR [Concomitant]
     Route: 048
  4. PROVIGIL [Concomitant]
     Route: 048
  5. CLONAZEPAM [Concomitant]
     Route: 048
  6. BACLOFEN [Concomitant]
     Route: 048
  7. PERCOCET [Concomitant]
     Dosage: 10-325 MG
     Route: 048

REACTIONS (7)
  - Bullous lung disease [Unknown]
  - Pulmonary mass [Unknown]
  - Pneumothorax [Recovered/Resolved]
  - Polycythaemia [Unknown]
  - Silicosis [Unknown]
  - Emphysema [Unknown]
  - Accidental overdose [Recovered/Resolved]
